FAERS Safety Report 8884500 (Version 1)
Quarter: 2012Q4

REPORT INFORMATION
  Report Type: 
  Country: US (occurrence: US)
  Receive Date: 20121102
  Receipt Date: 20121102
  Transmission Date: 20130627
  Serious: No
  Sender: FDA-Public Use
  Company Number: US-ASTRAZENECA-2012SE17977

PATIENT
  Age: 66 Year
  Sex: Female
  Weight: 70.3 kg

DRUGS (11)
  1. CRESTOR [Suspect]
     Route: 048
  2. METOPROLOL [Concomitant]
     Indication: ANXIETY
  3. PROTONIX [Concomitant]
  4. OPRATROPIUM BROMIDE [Concomitant]
  5. FLUTICASONE PROPIONATE [Concomitant]
  6. IRON [Concomitant]
  7. CQ 10 [Concomitant]
  8. MILK THISTLE [Concomitant]
  9. CALCIUM [Concomitant]
  10. FOLIC ACID [Concomitant]
  11. MOVE FREE [Concomitant]

REACTIONS (2)
  - Back pain [Unknown]
  - Arthralgia [Unknown]
